FAERS Safety Report 5939318-X (Version None)
Quarter: 2008Q4

REPORT INFORMATION
  Report Type: 
  Country: None (occurrence: None)
  Receive Date: 20081103
  Receipt Date: 20081022
  Transmission Date: 20090506
  Serious: Yes (Life-Threatening)
  Sender: FDA-Public Use
  Company Number: FR-PFIZER INC-2008089573

PATIENT
  Sex: Male

DRUGS (3)
  1. ZYVOXID [Suspect]
     Dates: start: 20080917, end: 20080919
  2. VANCOMYCIN HYDROCHLORIDE [Suspect]
     Route: 042
     Dates: start: 20080902, end: 20080917
  3. TIENAM [Concomitant]
     Route: 042
     Dates: start: 20080902

REACTIONS (5)
  - EOSINOPHILIA [None]
  - HEPATIC ENZYME INCREASED [None]
  - RASH [None]
  - RENAL FAILURE [None]
  - TOXIC SKIN ERUPTION [None]
